FAERS Safety Report 17540852 (Version 1)
Quarter: 2020Q1

REPORT INFORMATION
  Report Type: Spontaneous
  Country: US (occurrence: US)
  Receive Date: 20200313
  Receipt Date: 20200313
  Transmission Date: 20200409
  Serious: No
  Sender: FDA-Public Use
  Company Number: US-TARO-2019TAR00628

PATIENT
  Sex: Female

DRUGS (2)
  1. LAMOTRIGINE (TORRENT) [Suspect]
     Active Substance: LAMOTRIGINE
     Dosage: UNK
     Dates: start: 20190611
  2. LAMOTRIGINE. [Suspect]
     Active Substance: LAMOTRIGINE
     Dosage: UNK
     Dates: start: 2019

REACTIONS (3)
  - Contusion [Not Recovered/Not Resolved]
  - Product substitution issue [Not Recovered/Not Resolved]
  - Yellow skin [Not Recovered/Not Resolved]

NARRATIVE: CASE EVENT DATE: 2019
